FAERS Safety Report 11105694 (Version 1)
Quarter: 2015Q2

REPORT INFORMATION
  Report Type: Spontaneous
  Country: US (occurrence: US)
  Receive Date: 20150512
  Receipt Date: 20150512
  Transmission Date: 20150821
  Serious: Yes (Hospitalization)
  Sender: FDA-Public Use
  Company Number: US-AUROBINDO-AUR-APL-2015-04127

PATIENT
  Age: 75 Year
  Sex: Female

DRUGS (3)
  1. HUMALOG [Suspect]
     Active Substance: INSULIN LISPRO
     Indication: DIABETES MELLITUS
     Dosage: 10U THREE TIMES A DAY
  2. NPH INSULIN [Suspect]
     Active Substance: INSULIN BEEF
     Indication: DIABETES MELLITUS
     Dosage: 35U DAILY
  3. PIOGLITAZONE [Suspect]
     Active Substance: PIOGLITAZONE
     Indication: DIABETES MELLITUS
     Dosage: 15 MG, ONCE A DAY
     Route: 048

REACTIONS (6)
  - Ventricular extrasystoles [Recovered/Resolved]
  - Hypoglycaemia [Recovered/Resolved]
  - Disorientation [Recovered/Resolved]
  - Mental status changes [Recovered/Resolved]
  - Electrocardiogram QT prolonged [Recovered/Resolved]
  - Delirium [Recovered/Resolved]
